FAERS Safety Report 16921829 (Version 1)
Quarter: 2019Q4

REPORT INFORMATION
  Report Type: Spontaneous
  Country: US (occurrence: US)
  Receive Date: 20191015
  Receipt Date: 20191015
  Transmission Date: 20200122
  Serious: Yes (Hospitalization, Other)
  Sender: FDA-Public Use
  Company Number: PHHY2019US226482

PATIENT
  Age: 52 Year
  Sex: Female

DRUGS (1)
  1. ZOLEDRONATE [Suspect]
     Active Substance: ZOLEDRONIC ACID
     Indication: METASTASES TO BONE
     Dosage: TOTAL OF 50 DOSES OF 4 MG IV INFUSIONS, INITIALLY ON A MONTHLY BASIS THEN EVERY THREE MONTHS FOR THE
     Route: 042

REACTIONS (1)
  - Atypical femur fracture [Recovered/Resolved]
